FAERS Safety Report 7246390-6 (Version None)
Quarter: 2011Q1

REPORT INFORMATION
  Report Type: 
  Country: None (occurrence: None)
  Receive Date: 20110126
  Receipt Date: 20110118
  Transmission Date: 20110831
  Serious: Yes (Hospitalization, Other)
  Sender: FDA-Public Use
  Company Number: BE-NAPPMUNDI-GBR-2011-0007636

PATIENT
  Age: 39 Year
  Sex: Male

DRUGS (5)
  1. MORPHINE SULFATE [Suspect]
     Indication: STOMATITIS
     Route: 065
  2. MEROPENEM [Concomitant]
     Indication: FEBRILE NEUTROPENIA
  3. COTRIM [Concomitant]
     Indication: PROPHYLAXIS
  4. TEICOPLANIN [Concomitant]
     Indication: FEBRILE NEUTROPENIA
  5. CASPOFUNGIN [Concomitant]
     Indication: PROPHYLAXIS

REACTIONS (4)
  - ACUTE RESPIRATORY FAILURE [None]
  - ACUTE RESPIRATORY DISTRESS SYNDROME [None]
  - DEPRESSED LEVEL OF CONSCIOUSNESS [None]
  - PNEUMONIA ASPIRATION [None]
